FAERS Safety Report 25178720 (Version 1)
Quarter: 2025Q2

REPORT INFORMATION
  Report Type: Report from Study
  Country: DE (occurrence: DE)
  Receive Date: 20250409
  Receipt Date: 20250409
  Transmission Date: 20250717
  Serious: Yes (Other)
  Sender: ALIMERA
  Company Number: DE-ALIMERA SCIENCES LIMITED-DE-IL-2017-003323

PATIENT
  Sex: Male

DRUGS (7)
  1. ILUVIEN [Suspect]
     Active Substance: FLUOCINOLONE ACETONIDE
     Indication: Diabetic retinal oedema
     Dosage: 0.25 MICROGRAM, QD - LEFT EYE
     Route: 031
     Dates: start: 20160518
  2. ILUVIEN [Suspect]
     Active Substance: FLUOCINOLONE ACETONIDE
     Dosage: 0.25 MICROGRAM, QD - RIGHT EY
     Route: 031
     Dates: start: 20160530
  3. METFORMIN [Concomitant]
     Active Substance: METFORMIN HYDROCHLORIDE
     Indication: Type 2 diabetes mellitus
     Dates: start: 2009
  4. GLIMEPIRIDE [Concomitant]
     Active Substance: GLIMEPIRIDE
     Indication: Type 2 diabetes mellitus
     Dates: start: 2009
  5. Floxal EDO 5x daily [Concomitant]
     Indication: Conjunctivitis bacterial
     Dates: start: 20160524
  6. OFLOXACIN [Concomitant]
     Active Substance: OFLOXACIN
     Indication: Infection prophylaxis
     Dates: start: 20160530, end: 20160604
  7. CLOBEGALEN [Concomitant]
     Indication: Psoriasis

REACTIONS (2)
  - Intraocular lens implant [Recovered/Resolved]
  - Cataract operation [Recovered/Resolved]

NARRATIVE: CASE EVENT DATE: 20170213
